FAERS Safety Report 9249569 (Version 2)
Quarter: 2013Q2

REPORT INFORMATION
  Report Type: Spontaneous
  Country: US (occurrence: US)
  Receive Date: 20130423
  Receipt Date: 20130429
  Transmission Date: 20140414
  Serious: Yes (Death)
  Sender: FDA-Public Use
  Company Number: US-FRI-1000044552

PATIENT
  Age: 87 Year
  Sex: Female

DRUGS (1)
  1. NAMENDA [Suspect]
     Indication: DEMENTIA
     Dosage: 20MG
     Route: 048
     Dates: start: 2007, end: 201304

REACTIONS (3)
  - Dementia [Fatal]
  - Cerebrovascular accident [Fatal]
  - Hypertension [Fatal]
